FAERS Safety Report 4779510-3 (Version None)
Quarter: 2005Q3

REPORT INFORMATION
  Report Type: 
  Country: None (occurrence: None)
  Receive Date: 20050914
  Receipt Date: 20040921
  Transmission Date: 20060218
  Serious: Yes (Hospitalization)
  Sender: FDA-Public Use
  Company Number: 163-20785-04060704

PATIENT
  Age: 63 Year
  Sex: Male
  Weight: 82.8 kg

DRUGS (4)
  1. THALOMID [Suspect]
     Indication: MULTIPLE MYELOMA
     Dosage: 200 MG, DAILY, ORAL; 200 MG, DAILY, ORAL
     Route: 048
     Dates: start: 20040327, end: 20040330
  2. THALOMID [Suspect]
     Indication: MULTIPLE MYELOMA
     Dosage: 200 MG, DAILY, ORAL; 200 MG, DAILY, ORAL
     Route: 048
     Dates: start: 20040502, end: 20040505
  3. MELPHALAN (MELPHALAN) [Suspect]
     Indication: MULTIPLE MYELOMA
     Dosage: 360 MG, INTRAVENOUS; 368 MG, INTRAVENOUS
     Route: 042
     Dates: start: 20040606, end: 20040606
  4. MELPHALAN (MELPHALAN) [Suspect]
     Indication: MULTIPLE MYELOMA
     Dosage: 360 MG, INTRAVENOUS; 368 MG, INTRAVENOUS
     Route: 042
     Dates: start: 20040804, end: 20040804

REACTIONS (6)
  - BACTERAEMIA [None]
  - CHEST PAIN [None]
  - CORYNEBACTERIUM INFECTION [None]
  - HYPOTENSION [None]
  - PERICARDITIS [None]
  - STAPHYLOCOCCAL INFECTION [None]
